FAERS Safety Report 5871647-0 (Version None)
Quarter: 2008Q3

REPORT INFORMATION
  Report Type: 
  Country: None (occurrence: None)
  Receive Date: 20080905
  Receipt Date: 20080826
  Transmission Date: 20090109
  Serious: Yes (Hospitalization, Disabling)
  Sender: FDA-Public Use
  Company Number: US-JNJFOC-20080404774

PATIENT
  Sex: Female
  Weight: 53.52 kg

DRUGS (1)
  1. DURAGESIC-100 [Suspect]
     Indication: PAIN
     Route: 062

REACTIONS (5)
  - ADVERSE DRUG REACTION [None]
  - DISABILITY [None]
  - HOSPITALISATION [None]
  - PAIN [None]
  - SURGERY [None]
